FAERS Safety Report 9354845 (Version 1)
Quarter: 2013Q2

REPORT INFORMATION
  Report Type: Spontaneous
  Country: US (occurrence: US)
  Receive Date: 20130619
  Receipt Date: 20130619
  Transmission Date: 20140414
  Serious: No
  Sender: FDA-Public Use
  Company Number: US-009507513-1306USA006026

PATIENT
  Age: 85 Year
  Sex: Female

DRUGS (3)
  1. AZASITE [Suspect]
     Indication: VISION BLURRED
     Dosage: 1 DROP IN RIGHT EYE DAILY AT NIGHT
     Route: 031
     Dates: start: 20130524, end: 20130604
  2. RESTASIS [Concomitant]
  3. REFRESH OPTIVE [Concomitant]

REACTIONS (3)
  - Vision blurred [Not Recovered/Not Resolved]
  - Drug dose omission [Unknown]
  - Wrong technique in drug usage process [Unknown]
